FAERS Safety Report 18658805 (Version 3)
Quarter: 2021Q2

REPORT INFORMATION
  Report Type: Spontaneous
  Country: US (occurrence: US)
  Receive Date: 20201224
  Receipt Date: 20210630
  Transmission Date: 20210717
  Serious: Yes (Other)
  Sender: FDA-Public Use
  Company Number: US-GILEAD-2020-0509256

PATIENT
  Sex: Male
  Weight: 72.56 kg

DRUGS (15)
  1. OMEPRAZOLE. [Concomitant]
     Active Substance: OMEPRAZOLE
  2. TRUVADA [Suspect]
     Active Substance: EMTRICITABINE\TENOFOVIR DISOPROXIL FUMARATE
     Indication: HIV INFECTION
     Dosage: UNK
     Route: 048
     Dates: start: 20101201, end: 20130831
  3. ATRIPLA [Suspect]
     Active Substance: EFAVIRENZ\EMTRICITABINE\TENOFOVIR DISOPROXIL FUMARATE
     Indication: HIV INFECTION
     Dosage: UNK
     Route: 048
     Dates: start: 20140101, end: 20200131
  4. PANTOPRAZOLE [Concomitant]
     Active Substance: PANTOPRAZOLE
  5. EMTRIVA [Concomitant]
     Active Substance: EMTRICITABINE
  6. CORTISONE [Concomitant]
     Active Substance: CORTISONE
  7. VIREAD [Suspect]
     Active Substance: TENOFOVIR DISOPROXIL FUMARATE
     Indication: HIV INFECTION
     Dosage: UNK
     Route: 065
     Dates: start: 20180827, end: 20180901
  8. FAMOTIDINE. [Concomitant]
     Active Substance: FAMOTIDINE
  9. BIKTARVY [Concomitant]
     Active Substance: BICTEGRAVIR SODIUM\EMTRICITABINE\TENOFOVIR ALAFENAMIDE FUMARATE
  10. AMOXICILLIN. [Concomitant]
     Active Substance: AMOXICILLIN
  11. PREDNISONE. [Concomitant]
     Active Substance: PREDNISONE
  12. NORVIR [Concomitant]
     Active Substance: RITONAVIR
  13. PREZISTA [Concomitant]
     Active Substance: DARUNAVIR ETHANOLATE
  14. ACETAMINOPHEN. [Concomitant]
     Active Substance: ACETAMINOPHEN
  15. SUSTIVA [Concomitant]
     Active Substance: EFAVIRENZ

REACTIONS (6)
  - Emotional distress [Unknown]
  - Pain [Unknown]
  - Osteonecrosis [Not Recovered/Not Resolved]
  - Osteonecrosis [Unknown]
  - Osteonecrosis [Unknown]
  - Bone loss [Unknown]

NARRATIVE: CASE EVENT DATE: 20160415
